FAERS Safety Report 9225257 (Version 1)
Quarter: 2013Q1

REPORT INFORMATION
  Report Type: Spontaneous
  Country: US (occurrence: None)
  Receive Date: 20120912
  Receipt Date: 20120912
  Transmission Date: 20140127
  Serious: Yes (Other)
  Sender: FDA-Public Use
  Company Number: 2012SP026612

PATIENT
  Age: 50 Year
  Sex: Female

DRUGS (3)
  1. VICTRELIS (200 MG) [Suspect]
     Indication: HEPATITIS C
     Route: 048
     Dates: start: 201201, end: 20120515
  2. RIBAVIRIN [Suspect]
     Indication: PRODUCT USED FOR UNKNOWN INDICATION
     Dates: start: 20101117, end: 20120515
  3. PEGASYS [Suspect]
     Indication: PRODUCT USED FOR UNKNOWN INDICATION
     Route: 058
     Dates: start: 20101117, end: 20120515

REACTIONS (3)
  - Diarrhoea [None]
  - Vomiting [None]
  - Anaemia [None]
